FAERS Safety Report 6788577-2 (Version None)
Quarter: 2010Q2

REPORT INFORMATION
  Report Type: 
  Country: None (occurrence: None)
  Receive Date: 20100623
  Receipt Date: 20080612
  Transmission Date: 20101027
  Serious: No
  Sender: FDA-Public Use
  Company Number: US-PFIZER INC-2008020660

PATIENT
  Sex: Male
  Weight: 60.909 kg

DRUGS (10)
  1. XALATAN [Suspect]
     Indication: INTRAOCULAR PRESSURE TEST ABNORMAL
     Dates: start: 20071012, end: 20080310
  2. DRUG, UNSPECIFIED [Suspect]
  3. TYLENOL [Suspect]
  4. ZESTRIL [Concomitant]
  5. ATENOLOL [Concomitant]
  6. TYLENOL [Concomitant]
  7. DRUG, UNSPECIFIED [Concomitant]
  8. CARDURA [Concomitant]
  9. ACETYLSALICYLIC ACID [Concomitant]
  10. ONE-A-DAY [Concomitant]

REACTIONS (5)
  - BLOOD PRESSURE DECREASED [None]
  - EYE DISORDER [None]
  - INFLUENZA [None]
  - UNEVALUABLE EVENT [None]
  - VISUAL IMPAIRMENT [None]
